FAERS Safety Report 4595230-2 (Version None)
Quarter: 2005Q1

REPORT INFORMATION
  Report Type: 
  Country: None (occurrence: None)
  Receive Date: 20050223
  Receipt Date: 20050211
  Transmission Date: 20050727
  Serious: Yes (Other)
  Sender: FDA-Public Use
  Company Number: 200415568BCC

PATIENT
  Age: 82 Year
  Sex: Male
  Weight: 78.4723 kg

DRUGS (6)
  1. ALEVE (CAPLET) [Suspect]
     Indication: PAIN
     Dosage: 220 MG, BID, ORAL
     Route: 048
     Dates: end: 20041116
  2. ASPIRIN [Suspect]
     Indication: MYOCARDIAL INFARCTION
  3. ASPIRIN [Suspect]
     Indication: PROPHYLAXIS
  4. GLUCOPHAGE [Concomitant]
  5. MULTIVITAMIN [Concomitant]
  6. ATENOLOL [Concomitant]

REACTIONS (1)
  - CEREBROVASCULAR ACCIDENT [None]
